FAERS Safety Report 13671426 (Version 1)
Quarter: 2017Q2

REPORT INFORMATION
  Report Type: Spontaneous
  Country: US (occurrence: US)
  Receive Date: 20170620
  Receipt Date: 20170620
  Transmission Date: 20170830
  Serious: Yes (Other)
  Sender: FDA-Public Use
  Company Number: US-ROCHE-1281378

PATIENT
  Sex: Female

DRUGS (2)
  1. AMLODIPINE [Concomitant]
     Active Substance: AMLODIPINE BESYLATE
     Indication: BLOOD PRESSURE MEASUREMENT
  2. XELODA [Suspect]
     Active Substance: CAPECITABINE
     Indication: LYMPHOMA
     Route: 065

REACTIONS (2)
  - Tremor [Unknown]
  - Cerebrovascular accident [Unknown]
